FAERS Safety Report 9253536 (Version 1)
Quarter: 2013Q2

REPORT INFORMATION
  Report Type: Spontaneous
  Country: US (occurrence: US)
  Receive Date: 20130425
  Receipt Date: 20130425
  Transmission Date: 20140414
  Serious: No
  Sender: FDA-Public Use
  Company Number: US-BIOGENIDEC-2013BI036488

PATIENT
  Age: 48 Year
  Sex: Female

DRUGS (1)
  1. TYSABRI [Suspect]
     Indication: MULTIPLE SCLEROSIS
     Route: 042
     Dates: start: 20120221

REACTIONS (4)
  - Bladder disorder [Not Recovered/Not Resolved]
  - Hypersomnia [Recovered/Resolved]
  - Incontinence [Not Recovered/Not Resolved]
  - Urinary tract infection [Not Recovered/Not Resolved]
